FAERS Safety Report 5158960-X (Version None)
Quarter: 2006Q4

REPORT INFORMATION
  Report Type: 
  Country: None (occurrence: None)
  Receive Date: 20061128
  Receipt Date: 20061006
  Transmission Date: 20070319
  Serious: Yes (Life-Threatening)
  Sender: FDA-Public Use
  Company Number: JP-BRISTOL-MYERS SQUIBB COMPANY-13536297

PATIENT
  Age: 65 Year
  Sex: Male

DRUGS (8)
  1. PARAPLATIN [Suspect]
     Indication: ADULT T-CELL LYMPHOMA/LEUKAEMIA
     Route: 041
     Dates: start: 20040427, end: 20041026
  2. VEPESID [Suspect]
     Indication: ADULT T-CELL LYMPHOMA/LEUKAEMIA
     Route: 041
     Dates: start: 20041026, end: 20041028
  3. ADRIAMYCIN PFS [Suspect]
     Indication: ADULT T-CELL LYMPHOMA/LEUKAEMIA
     Route: 041
     Dates: start: 20040518, end: 20041012
  4. PERAZOLIN [Suspect]
     Indication: ADULT T-CELL LYMPHOMA/LEUKAEMIA
     Route: 048
     Dates: start: 20051116, end: 20051128
  5. ONCOVIN [Concomitant]
     Route: 042
     Dates: start: 20040518, end: 20040921
  6. ENDOXAN [Concomitant]
     Route: 041
     Dates: start: 20040405, end: 20040821
  7. FILDESIN [Concomitant]
     Route: 042
     Dates: start: 20040427, end: 20041026
  8. CYMERIN [Concomitant]
     Route: 041
     Dates: start: 20041012, end: 20041012

REACTIONS (2)
  - ACUTE MYELOID LEUKAEMIA [None]
  - PANCYTOPENIA [None]
